FAERS Safety Report 7509178-4 (Version None)
Quarter: 2011Q2

REPORT INFORMATION
  Report Type: 
  Country: None (occurrence: None)
  Receive Date: 20110527
  Receipt Date: 20101103
  Transmission Date: 20111010
  Serious: No
  Sender: FDA-Public Use
  Company Number: US-MYLANLABS-2010S1020236

PATIENT
  Age: 58 Year
  Sex: Male

DRUGS (3)
  1. REBIF [Concomitant]
  2. AMITRIPTYLINE HCL [Suspect]
     Indication: HEADACHE
     Route: 048
  3. AVONEX [Concomitant]

REACTIONS (1)
  - HANGOVER [None]
